FAERS Safety Report 9249062 (Version 1)
Quarter: 2013Q1

REPORT INFORMATION
  Report Type: Spontaneous
  Country: US (occurrence: None)
  Receive Date: 20130305
  Receipt Date: 20130305
  Transmission Date: 20140127
  Serious: Yes (Hospitalization)
  Sender: FDA-Public Use
  Company Number: 163-21880-12061718

PATIENT
  Age: 51 Year
  Sex: Male

DRUGS (7)
  1. REVLIMID [Suspect]
     Indication: PLASMA CELL MYELOMA
     Dosage: 1 IN 2 D
     Route: 048
     Dates: start: 20111028
  2. LRICA (PREGABALIN) [Concomitant]
  3. OXYCONTIN (OXYCODONE HYDROCHLORIDE) [Concomitant]
  4. LEXAPRO (ESCITALOPRAM OXLATE) [Concomitant]
  5. ACYCLOVIR (ACICLOVIR) (ACICLOVIR) [Concomitant]
  6. MULTIVITAMIN (MULTIVITAMINS) [Concomitant]
  7. ASPIRIN (ACETYLSALICYLC ACID) [Concomitant]

REACTIONS (1)
  - Pneumonia [None]
